FAERS Safety Report 17604863 (Version 1)
Quarter: 2020Q1

REPORT INFORMATION
  Report Type: Spontaneous
  Country: US (occurrence: US)
  Receive Date: 20200330
  Receipt Date: 20200330
  Transmission Date: 20200409
  Serious: Yes (Hospitalization)
  Sender: FDA-Public Use
  Company Number: None

PATIENT
  Age: 70 Year
  Sex: Male
  Weight: 134.72 kg

DRUGS (2)
  1. CEPHALEXIN (CEPHALEXIN 500MG CAP) [Suspect]
     Active Substance: CEPHALEXIN
     Route: 048
     Dates: start: 20200110, end: 20200127
  2. FUROSEMIDE (FUROSEMIDE 20MG TAB) [Suspect]
     Active Substance: FUROSEMIDE
     Indication: OEDEMA PERIPHERAL
     Route: 048
     Dates: start: 20200110, end: 20200127

REACTIONS (1)
  - Rash pruritic [None]

NARRATIVE: CASE EVENT DATE: 20200130
